FAERS Safety Report 6793561-9 (Version None)
Quarter: 2010Q2

REPORT INFORMATION
  Report Type: 
  Country: None (occurrence: None)
  Receive Date: 20100624
  Receipt Date: 20090204
  Transmission Date: 20101027
  Serious: Yes (Other)
  Sender: FDA-Public Use
  Company Number: US-PFIZER INC-2008097679

PATIENT
  Age: 37 Year
  Sex: Female

DRUGS (1)
  1. GEODON [Suspect]

REACTIONS (3)
  - BACK PAIN [None]
  - HYPERTHYROIDISM [None]
  - TRISMUS [None]
